FAERS Safety Report 18001033 (Version 1)
Quarter: 2020Q3

REPORT INFORMATION
  Report Type: Spontaneous
  Country: FR (occurrence: FR)
  Receive Date: 20200709
  Receipt Date: 20200709
  Transmission Date: 20201103
  Serious: Yes (Hospitalization, Other)
  Sender: FDA-Public Use
  Company Number: FR-SA-2020SA175067

PATIENT

DRUGS (3)
  1. APRANAX [NAPROXEN SODIUM] [Concomitant]
     Active Substance: NAPROXEN SODIUM
     Dosage: UNK
  2. TRUXIMA [Suspect]
     Active Substance: RITUXIMAB-ABBS
     Indication: RHEUMATOID ARTHRITIS
     Dosage: 2 PERF OF 1000 MG AT 15 DAYS APART, EVERY 6 MONTHS
     Route: 041
     Dates: start: 20180904, end: 20191114
  3. ARAVA [Suspect]
     Active Substance: LEFLUNOMIDE
     Indication: RHEUMATOID ARTHRITIS
     Dosage: 1 DF, QD
     Route: 048
     Dates: end: 20200310

REACTIONS (1)
  - Crohn^s disease [Recovering/Resolving]

NARRATIVE: CASE EVENT DATE: 20200310
